FAERS Safety Report 4892725-9 (Version None)
Quarter: 2006Q1

REPORT INFORMATION
  Report Type: 
  Country: None (occurrence: None)
  Receive Date: 20060125
  Receipt Date: 20060125
  Transmission Date: 20060701
  Serious: Yes (Hospitalization)
  Sender: FDA-Public Use
  Company Number: None

PATIENT
  Age: 55 Year
  Sex: Male
  Weight: 135.6 kg

DRUGS (2)
  1. CEFEPIME [Suspect]
     Indication: INFECTION
     Dosage: 1 GRAM, Q8H,  IV
     Route: 042
     Dates: start: 20051005, end: 20051010
  2. CEFEPIME [Suspect]
     Indication: PYREXIA
     Dosage: 1 GRAM, Q8H,  IV
     Route: 042
     Dates: start: 20051005, end: 20051010

REACTIONS (3)
  - DIARRHOEA [None]
  - ORAL PAIN [None]
  - RASH [None]
